FAERS Safety Report 7652374-6 (Version None)
Quarter: 2011Q3

REPORT INFORMATION
  Report Type: 
  Country: None (occurrence: None)
  Receive Date: 20110803
  Receipt Date: 20110726
  Transmission Date: 20111222
  Serious: Yes (Other)
  Sender: FDA-Public Use
  Company Number: US-ABBOTT-11P-163-0842004-00

PATIENT
  Sex: Female
  Weight: 61.29 kg

DRUGS (1)
  1. HUMIRA [Suspect]
     Indication: CROHN'S DISEASE
     Dates: start: 20070101, end: 20101001

REACTIONS (5)
  - FATIGUE [None]
  - MULTIPLE SCLEROSIS [None]
  - WHITE BLOOD CELL COUNT INCREASED [None]
  - INTRACRANIAL HYPOTENSION [None]
  - HEADACHE [None]
